FAERS Safety Report 23350842 (Version 6)
Quarter: 2024Q4

REPORT INFORMATION
  Report Type: Spontaneous
  Country: US (occurrence: US)
  Receive Date: 20231229
  Receipt Date: 20241227
  Transmission Date: 20250114
  Serious: No
  Sender: PFIZER
  Company Number: US-PFIZER INC-PV202300206073

PATIENT
  Age: 92 Year
  Sex: Female

DRUGS (1)
  1. IBRANCE [Suspect]
     Active Substance: PALBOCICLIB
     Indication: Breast cancer female
     Dosage: 75 MG, ONCE DAILY FOR 14 DAYS ON, 7 DAYS OFF, 21-DAY CYCLE
     Route: 048

REACTIONS (3)
  - Neutrophil count decreased [Unknown]
  - Oropharyngeal discomfort [Unknown]
  - Off label use [Unknown]
